FAERS Safety Report 4410453-0 (Version None)
Quarter: 2004Q3

REPORT INFORMATION
  Report Type: 
  Country: None (occurrence: None)
  Receive Date: 20040729
  Receipt Date: 20040721
  Transmission Date: 20050211
  Serious: Yes (Other)
  Sender: FDA-Public Use
  Company Number: PHEH2004US08023

PATIENT
  Age: 57 Year
  Sex: Female

DRUGS (2)
  1. LAMISIL [Suspect]
     Route: 048
  2. LOPROX [Concomitant]

REACTIONS (3)
  - VISUAL DISTURBANCE [None]
  - VITREOUS DETACHMENT [None]
  - VITREOUS FLOATERS [None]
